FAERS Safety Report 21415760 (Version 3)
Quarter: 2022Q4

REPORT INFORMATION
  Report Type: Report from Study
  Country: DE (occurrence: None)
  Receive Date: 20221006
  Receipt Date: 20221017
  Transmission Date: 20230112
  Serious: Yes (Hospitalization)
  Sender: FDA-Public Use
  Company Number: DE-ROCHE-3194153

PATIENT
  Age: 68 Year
  Sex: Male

DRUGS (5)
  1. OBINUTUZUMAB [Suspect]
     Active Substance: OBINUTUZUMAB
     Indication: Chronic lymphocytic leukaemia
     Dosage: DATE OF LAST DOSE: 08/JUL/2022
     Route: 042
     Dates: start: 20220216
  2. VENETOCLAX [Suspect]
     Active Substance: VENETOCLAX
     Indication: Chronic lymphocytic leukaemia
     Dosage: DATE OF LAST DOSE: 28/SEP/2022
     Route: 048
     Dates: start: 20220309
  3. ETORICOXIB [Concomitant]
     Active Substance: ETORICOXIB
     Dates: start: 20220929
  4. METAMIZOLE [Concomitant]
     Active Substance: METAMIZOLE
     Dates: start: 20220929
  5. AMOXICILLIN\CLAVULANATE POTASSIUM [Concomitant]
     Active Substance: AMOXICILLIN\CLAVULANATE POTASSIUM
     Dates: start: 20221006

REACTIONS (2)
  - Abscess limb [Not Recovered/Not Resolved]
  - Necrotising soft tissue infection [Recovered/Resolved]

NARRATIVE: CASE EVENT DATE: 20220928
